FAERS Safety Report 5163252-9 (Version None)
Quarter: 2006Q4

REPORT INFORMATION
  Report Type: 
  Country: None (occurrence: None)
  Receive Date: 20061204
  Receipt Date: 20060130
  Transmission Date: 20070319
  Serious: Yes (Hospitalization)
  Sender: FDA-Public Use
  Company Number: FR-BAYER-200610111BFR

PATIENT
  Age: 50 Year
  Sex: Male
  Weight: 67 kg

DRUGS (32)
  1. SORAFENIB [Suspect]
     Indication: METASTATIC RENAL CELL CARCINOMA
     Dosage: TOTAL DAILY DOSE: 800 MG  UNIT DOSE: 200 MG
     Route: 048
     Dates: start: 20050824, end: 20050918
  2. SORAFENIB [Suspect]
     Dosage: TOTAL DAILY DOSE: 800 MG  UNIT DOSE: 200 MG
     Route: 048
     Dates: start: 20050922, end: 20051018
  3. SORAFENIB [Suspect]
     Dosage: TOTAL DAILY DOSE: 800 MG  UNIT DOSE: 200 MG
     Route: 048
     Dates: start: 20051213, end: 20060130
  4. SORAFENIB [Suspect]
     Dates: start: 20060222
  5. SORAFENIB [Suspect]
     Dosage: TOTAL DAILY DOSE: 800 MG  UNIT DOSE: 200 MG
     Route: 048
     Dates: start: 20051019, end: 20051213
  6. BENAZEPRIL HCL [Concomitant]
     Indication: RENAL FAILURE
     Route: 048
     Dates: start: 20040401
  7. DOXAZOSIN MESYLATE [Concomitant]
     Indication: BENIGN PROSTATIC HYPERPLASIA
     Route: 048
     Dates: start: 20050801
  8. TRAVATAN [Concomitant]
     Indication: PROPHYLAXIS
     Route: 031
     Dates: start: 20040401
  9. ACTISKENAN [Concomitant]
     Indication: BONE PAIN
     Dates: start: 20050801, end: 20051101
  10. ACTISKENAN [Concomitant]
     Dates: start: 20051101, end: 20051213
  11. FORLAX [Concomitant]
     Indication: CONSTIPATION PROPHYLAXIS
     Dates: start: 20050801
  12. SYMBICORT [Concomitant]
     Indication: BRONCHOSPASM
     Dates: start: 20050826, end: 20051115
  13. NEURONTIN [Concomitant]
     Indication: PERIPHERAL MOTOR NEUROPATHY
     Dates: start: 20050901
  14. OMEPRAZOLE [Concomitant]
     Indication: GASTROOESOPHAGEAL REFLUX PROPHYLAXIS
     Dates: start: 20050901
  15. SKENAN [Concomitant]
     Indication: BONE PAIN
     Dates: start: 20050801, end: 20050821
  16. SKENAN [Concomitant]
     Dates: start: 20050822, end: 20050901
  17. SKENAN [Concomitant]
     Dates: start: 20050901, end: 20051212
  18. SKENAN [Concomitant]
     Dates: start: 20051213
  19. DEXERYL [Concomitant]
     Indication: RASH
     Route: 061
     Dates: start: 20050901, end: 20051115
  20. EOSINE [Concomitant]
     Indication: RASH
     Route: 061
     Dates: start: 20050901, end: 20051115
  21. SOLUPRED [Concomitant]
     Indication: BONE PAIN
     Dates: start: 20051213
  22. SOLUPRED [Concomitant]
     Dates: start: 20050801, end: 20050823
  23. SOLUPRED [Concomitant]
     Dates: start: 20050824, end: 20051002
  24. SOLUPRED [Concomitant]
     Dates: start: 20051018, end: 20051212
  25. SOLUPRED [Concomitant]
     Dates: start: 20051003, end: 20051017
  26. KETOPROFEN [Concomitant]
     Indication: BONE PAIN
     Dates: start: 20050824, end: 20051003
  27. KETOPROFEN [Concomitant]
     Dates: start: 20051001, end: 20051115
  28. NEXIUM [Concomitant]
     Indication: GASTROOESOPHAGEAL REFLUX PROPHYLAXIS
     Dates: start: 20050801, end: 20050901
  29. RIVOTRIL [Concomitant]
     Indication: NEURALGIA
     Dates: start: 20050901, end: 20051018
  30. DAFALGAN [Concomitant]
     Indication: PAIN IN EXTREMITY
     Dates: start: 20050901, end: 20051001
  31. DUODERM [Concomitant]
     Indication: RASH
     Route: 061
     Dates: start: 20051018, end: 20051115
  32. TPN [Concomitant]
     Indication: WEIGHT DECREASED
     Dates: start: 20051115

REACTIONS (2)
  - DIZZINESS [None]
  - FATIGUE [None]
